FAERS Safety Report 17768087 (Version 1)
Quarter: 2020Q2

REPORT INFORMATION
  Report Type: Spontaneous
  Country: US (occurrence: US)
  Receive Date: 20200511
  Receipt Date: 20200511
  Transmission Date: 20200714
  Serious: No
  Sender: FDA-Public Use
  Company Number: NVSC2020US127266

PATIENT
  Sex: Male

DRUGS (1)
  1. COSENTYX [Suspect]
     Active Substance: SECUKINUMAB
     Indication: PRODUCT USED FOR UNKNOWN INDICATION
     Dosage: UNK, 300 (UNITS UNSPECIFIED)
     Route: 065
     Dates: start: 20000104, end: 20150514

REACTIONS (1)
  - Skin papilloma [Unknown]

NARRATIVE: CASE EVENT DATE: 201909
